FAERS Safety Report 7036797-4 (Version None)
Quarter: 2010Q4

REPORT INFORMATION
  Report Type: 
  Country: None (occurrence: None)
  Receive Date: 20101011
  Receipt Date: 20100927
  Transmission Date: 20110411
  Serious: Yes (Hospitalization)
  Sender: FDA-Public Use
  Company Number: US-BAYER-201019691NA

PATIENT
  Age: 40 Year
  Sex: Female
  Weight: 78 kg

DRUGS (5)
  1. YAZ [Suspect]
     Indication: ACNE
     Route: 048
     Dates: start: 20070301, end: 20071127
  2. YASMIN [Suspect]
     Indication: ACNE
     Route: 048
  3. OCELLA [Suspect]
     Indication: ACNE
     Route: 048
  4. IBUPROFEN [Concomitant]
     Indication: MIGRAINE
  5. DAYPRO [Concomitant]

REACTIONS (2)
  - DEEP VEIN THROMBOSIS [None]
  - INJURY [None]
